FAERS Safety Report 15628459 (Version 1)
Quarter: 2018Q4

REPORT INFORMATION
  Report Type: Report from Study
  Country: CO (occurrence: CO)
  Receive Date: 20181116
  Receipt Date: 20181116
  Transmission Date: 20190205
  Serious: Yes (Other)
  Sender: FDA-Public Use
  Company Number: CO-SHIRE-CO201832976

PATIENT

DRUGS (3)
  1. VPRIV [Suspect]
     Active Substance: VELAGLUCERASE ALFA
     Indication: GAUCHER^S DISEASE TYPE I
     Dosage: 5 VIAL, EVERY 15 DAYS
     Route: 050
     Dates: start: 2016
  2. IMIGLUCERASE [Concomitant]
     Active Substance: IMIGLUCERASE
     Indication: PRODUCT USED FOR UNKNOWN INDICATION
  3. PREDNISOLONE. [Concomitant]
     Active Substance: PREDNISOLONE
     Indication: PRODUCT USED FOR UNKNOWN INDICATION
     Dosage: UNK

REACTIONS (4)
  - Pyrexia [Unknown]
  - Thrombocytopenia [Unknown]
  - Gait disturbance [Unknown]
  - Bone pain [Unknown]
